FAERS Safety Report 24210664 (Version 1)
Quarter: 2024Q3

REPORT INFORMATION
  Report Type: Spontaneous
  Country: DE (occurrence: DE)
  Receive Date: 20240814
  Receipt Date: 20240814
  Transmission Date: 20241016
  Serious: Yes (Other)
  Sender: FRESENIUS KABI
  Company Number: DE-HIKMA PHARMACEUTICALS-DE-H14001-24-07580

PATIENT
  Age: 28 Year
  Sex: Female
  Weight: 108 kg

DRUGS (1)
  1. ROCURONIUM BROMIDE [Suspect]
     Active Substance: ROCURONIUM BROMIDE
     Indication: Induction of anaesthesia
     Dosage: UNK?FORM OF ADMIN: UNKNOWN

REACTIONS (1)
  - Anaphylactic reaction [Unknown]
